FAERS Safety Report 17386672 (Version 1)
Quarter: 2020Q1

REPORT INFORMATION
  Report Type: Spontaneous
  Country: CZ (occurrence: CZ)
  Receive Date: 20200206
  Receipt Date: 20200206
  Transmission Date: 20200409
  Serious: Yes (Death, Other)
  Sender: FDA-Public Use
  Company Number: CZ-MYLANLABS-2020M1013284

PATIENT
  Age: 3 Month
  Sex: Male

DRUGS (7)
  1. BUSULFAN. [Suspect]
     Active Substance: BUSULFAN
     Indication: AUTOLOGOUS HAEMATOPOIETIC STEM CELL TRANSPLANT
     Dosage: 500-700 NG/ML FROM DAYS -5 TO -2
     Route: 065
  2. FLUDARABINE [Suspect]
     Active Substance: FLUDARABINE PHOSPHATE
     Indication: IMMUNODEFICIENCY
     Dosage: FROM DAYS -6 TO -3
     Route: 065
  3. CICLOSPORIN [Suspect]
     Active Substance: CYCLOSPORINE
     Indication: PROPHYLAXIS AGAINST TRANSPLANT REJECTION
     Dosage: UNK
     Route: 065
  4. GANCICLOVIR. [Suspect]
     Active Substance: GANCICLOVIR
     Indication: CYTOMEGALOVIRUS INFECTION
     Dosage: AT THE AGE OF 3 MONTHS
     Route: 065
  5. ALEMTUZUMAB [Suspect]
     Active Substance: ALEMTUZUMAB
     Indication: IMMUNODEFICIENCY
     Dosage: FROM DAYS -8 TO -6.
     Route: 065
  6. MYCOPHENOLATE MOFETIL. [Suspect]
     Active Substance: MYCOPHENOLATE MOFETIL
     Indication: PROPHYLAXIS AGAINST TRANSPLANT REJECTION
     Dosage: UNK
     Route: 065
  7. GANCICLOVIR. [Suspect]
     Active Substance: GANCICLOVIR
     Dosage: AT THE AGE OF 26 MONTHS
     Route: 065

REACTIONS (9)
  - Sepsis [Fatal]
  - Multiple organ dysfunction syndrome [Fatal]
  - Cytomegalovirus infection [Unknown]
  - Abdominal pain [Unknown]
  - Febrile neutropenia [Unknown]
  - Vomiting [Unknown]
  - Septic shock [Fatal]
  - Mucosal inflammation [Unknown]
  - Dysphagia [Unknown]
